FAERS Safety Report 9100098 (Version 3)
Quarter: 2013Q2

REPORT INFORMATION
  Report Type: Spontaneous
  Country: JP (occurrence: JP)
  Receive Date: 20130214
  Receipt Date: 20130506
  Transmission Date: 20140414
  Serious: Yes (Other)
  Sender: FDA-Public Use
  Company Number: JP-PFIZER INC-2013057700

PATIENT
  Age: 79 Year
  Sex: Male
  Weight: 54 kg

DRUGS (10)
  1. ZOSYN [Suspect]
     Indication: SEPSIS
     Dosage: 4.5 G, 3X/DAY
     Route: 041
     Dates: start: 20121227, end: 20121231
  2. ZOSYN [Suspect]
     Indication: PANCREAS INFECTION
  3. VOLTAREN [Concomitant]
     Dosage: UNK
     Dates: start: 20121226
  4. ELENTAL [Concomitant]
     Dosage: 320 MG/DAY
     Dates: start: 20121129, end: 20121228
  5. MIRACLID [Concomitant]
     Indication: PANCREAS INFECTION
     Dosage: 300000 IU/DAY
     Route: 041
     Dates: start: 20121228, end: 20121231
  6. MIRACLID [Concomitant]
     Indication: SEPTIC SHOCK
  7. INOVAN [Concomitant]
     Indication: PANCREAS INFECTION
     Dosage: 300 MG/DAY
     Dates: start: 20121228, end: 20130103
  8. INOVAN [Concomitant]
     Indication: SEPTIC SHOCK
  9. FOY [Concomitant]
     Indication: SEPTIC SHOCK
     Dosage: 2000 MG/DAY
     Route: 041
     Dates: start: 20121231, end: 20130104
  10. GASTER [Concomitant]
     Indication: GASTROINTESTINAL HAEMORRHAGE
     Dosage: 40 MG/DAY
     Route: 041
     Dates: start: 20121231, end: 20130109

REACTIONS (3)
  - Interstitial lung disease [Recovering/Resolving]
  - Septic shock [None]
  - Acute respiratory distress syndrome [None]
